FAERS Safety Report 8411585-2 (Version None)
Quarter: 2012Q2

REPORT INFORMATION
  Report Type: 
  Country: None (occurrence: None)
  Receive Date: 20120605
  Receipt Date: 20120510
  Transmission Date: 20120825
  Serious: No
  Sender: FDA-Public Use
  Company Number: US-AMGEN-USASP2012029664

PATIENT
  Age: 52 Year
  Sex: Female

DRUGS (4)
  1. PREDNISONE [Concomitant]
     Dosage: 1 MG, UNK
  2. ENBREL [Suspect]
     Indication: RHEUMATOID ARTHRITIS
     Dosage: 50 MG, QWK
     Dates: start: 20110501, end: 20120201
  3. METHOTREXATE [Concomitant]
     Dosage: 1 MG, UNK
  4. FOLIC ACID [Concomitant]
     Dosage: 1 MG, UNK

REACTIONS (4)
  - INJECTION SITE REACTION [None]
  - INJECTION SITE PRURITUS [None]
  - RASH GENERALISED [None]
  - INJECTION SITE SWELLING [None]
